FAERS Safety Report 6757656-8 (Version None)
Quarter: 2010Q2

REPORT INFORMATION
  Report Type: 
  Country: None (occurrence: None)
  Receive Date: 20100607
  Receipt Date: 20100603
  Transmission Date: 20101027
  Serious: Yes (Death)
  Sender: FDA-Public Use
  Company Number: KR-ASTRAZENECA-2010SE25780

PATIENT
  Age: 23889 Day
  Sex: Male

DRUGS (6)
  1. IRESSA [Suspect]
     Indication: NON-SMALL CELL LUNG CANCER
     Route: 048
     Dates: start: 20050520, end: 20050528
  2. MGO [Concomitant]
     Indication: CONSTIPATION
     Dates: start: 20050501, end: 20050528
  3. MORPHINE SULFATE [Concomitant]
     Indication: PAIN
     Dates: start: 20050501, end: 20050528
  4. LEVODROPOROPITINO [Concomitant]
     Indication: COUGH
     Dates: start: 20050501, end: 20050528
  5. AMINOPHYLLINE [Concomitant]
     Indication: DYSPNOEA
     Dates: start: 20050527, end: 20050528
  6. CAFSOL [Concomitant]
     Indication: NUTRITIONAL SUPPORT
     Dates: start: 20050528

REACTIONS (1)
  - MALIGNANT PLEURAL EFFUSION [None]
